FAERS Safety Report 25338725 (Version 4)
Quarter: 2025Q3

REPORT INFORMATION
  Report Type: Report from Study
  Country: US (occurrence: US)
  Receive Date: 20250520
  Receipt Date: 20250710
  Transmission Date: 20251021
  Serious: Yes (Other)
  Sender: MALLINCKRODT
  Company Number: US-MALLINCKRODT-MNK202502671

PATIENT
  Age: 49 Year
  Sex: Male

DRUGS (3)
  1. CORTICOTROPIN [Suspect]
     Active Substance: CORTICOTROPIN
     Indication: Psoriatic arthropathy
     Route: 058
  2. COSENTYX [Concomitant]
     Active Substance: SECUKINUMAB
  3. COSENTYX [Concomitant]
     Active Substance: SECUKINUMAB

REACTIONS (3)
  - Osteolipoma [Unknown]
  - Lipoma [Unknown]
  - Hypertension [Unknown]

NARRATIVE: CASE EVENT DATE: 20250508
